FAERS Safety Report 11468148 (Version 3)
Quarter: 2016Q2

REPORT INFORMATION
  Report Type: Spontaneous
  Country: DK (occurrence: DK)
  Receive Date: 20150908
  Receipt Date: 20160506
  Transmission Date: 20160815
  Serious: Yes (Disabling)
  Sender: FDA-Public Use
  Company Number: DK-SEPTODONT-201502989

PATIENT
  Age: 49 Year
  Sex: Female

DRUGS (1)
  1. SEPTOCAINE [Suspect]
     Active Substance: ARTICAINE HYDROCHLORIDE\EPINEPHRINE BITARTRATE
     Indication: LOCAL ANAESTHESIA
     Route: 004
     Dates: start: 20111224, end: 20120627

REACTIONS (7)
  - Injection site pain [Unknown]
  - Facial pain [Not Recovered/Not Resolved]
  - Tinnitus [Unknown]
  - Trigeminal neuralgia [Not Recovered/Not Resolved]
  - Toothache [Not Recovered/Not Resolved]
  - Dysaesthesia [Unknown]
  - Pain in jaw [Not Recovered/Not Resolved]

NARRATIVE: CASE EVENT DATE: 20111224
